FAERS Safety Report 16289629 (Version 2)
Quarter: 2019Q3

REPORT INFORMATION
  Report Type: Report from Study
  Country: US (occurrence: US)
  Receive Date: 20190509
  Receipt Date: 20190814
  Transmission Date: 20191004
  Serious: Yes (Other)
  Sender: FDA-Public Use
  Company Number: US-TEVA-2019-US-1047123

PATIENT
  Sex: Female

DRUGS (12)
  1. COPAXONE [Suspect]
     Active Substance: GLATIRAMER ACETATE
     Indication: MULTIPLE SCLEROSIS
     Route: 058
     Dates: start: 20180201
  2. CLOPIDOGREL [Concomitant]
     Active Substance: CLOPIDOGREL BISULFATE
  3. ESCITALOPRAM [Concomitant]
     Active Substance: ESCITALOPRAM OXALATE
  4. GABAPENTIN. [Concomitant]
     Active Substance: GABAPENTIN
  5. MULTIVITAMIN CHW ADLT GUM [Concomitant]
  6. VITAMIN C [Concomitant]
     Active Substance: ASCORBIC ACID
  7. FLUTICASONE. [Concomitant]
     Active Substance: FLUTICASONE
  8. HYDROCODONE [Concomitant]
     Active Substance: HYDROCODONE
  9. MEMANTINE. [Concomitant]
     Active Substance: MEMANTINE
  10. ASPIRIN. [Concomitant]
     Active Substance: ASPIRIN
  11. METOPROLOL. [Concomitant]
     Active Substance: METOPROLOL
  12. OMEPRAZOLE. [Concomitant]
     Active Substance: OMEPRAZOLE

REACTIONS (8)
  - Balance disorder [Not Recovered/Not Resolved]
  - Pelvic fracture [Not Recovered/Not Resolved]
  - Fatigue [Not Recovered/Not Resolved]
  - Musculoskeletal pain [Not Recovered/Not Resolved]
  - Loss of personal independence in daily activities [Not Recovered/Not Resolved]
  - Memory impairment [Not Recovered/Not Resolved]
  - Insomnia [Not Recovered/Not Resolved]
  - Pain in extremity [Not Recovered/Not Resolved]
